FAERS Safety Report 15743785 (Version 1)
Quarter: 2018Q4

REPORT INFORMATION
  Report Type: Spontaneous
  Country: GB (occurrence: GB)
  Receive Date: 20181220
  Receipt Date: 20181220
  Transmission Date: 20190205
  Serious: Yes (Other)
  Sender: FDA-Public Use
  Company Number: GB-TEVA-2018-GB-989232

PATIENT
  Age: 56 Year
  Sex: Female
  Weight: 76 kg

DRUGS (12)
  1. HYDROCORTISONE. [Concomitant]
     Active Substance: HYDROCORTISONE
     Dosage: TAKE ONE IN MORNING, ONE  AT LUNCH AND HALF
     Dates: start: 20170904
  2. TRAMADOL. [Concomitant]
     Active Substance: TRAMADOL
     Dosage: TO BE TAKEN TWICE DAILY
     Dates: start: 20170816, end: 20181011
  3. CELECOXIB. [Concomitant]
     Active Substance: CELECOXIB
     Dosage: 2 DOSAGE FORMS DAILY; WITH FOOD, STOP IF ANY INDIGESTION
     Dates: start: 20170816
  4. CAPSAICIN. [Concomitant]
     Active Substance: CAPSAICIN
     Dosage: 3 DOSAGE FORMS DAILY; APPLY
     Dates: start: 20170816
  5. DOMPERIDONE [Concomitant]
     Active Substance: DOMPERIDONE
     Dosage: TO BE TAKEN TWICE DAILY
     Dates: start: 20180917, end: 20180922
  6. LISINOPRIL. [Concomitant]
     Active Substance: LISINOPRIL
     Dosage: 1 DOSAGE FORMS DAILY;
     Dates: start: 20170816
  7. AMITRIPTYLINE HYDROCHLORIDE. [Concomitant]
     Active Substance: AMITRIPTYLINE HYDROCHLORIDE
     Dosage: 1 DOSAGE FORMS DAILY; AT NIGHT
     Dates: start: 20180110, end: 20181003
  8. AMLODIPINE [Concomitant]
     Active Substance: AMLODIPINE BESYLATE
     Dosage: 1 DOSAGE FORMS DAILY;
     Dates: start: 20181105
  9. PREGABALIN. [Concomitant]
     Active Substance: PREGABALIN
     Dosage: 2 DOSAGE FORMS DAILY;
     Dates: start: 20180110
  10. NITROFURANTOIN. [Concomitant]
     Active Substance: NITROFURANTOIN
     Dosage: 2 DOSAGE FORMS DAILY; (FOR 7 DAY COURSE)
     Dates: start: 20180831, end: 20180907
  11. LONGTEC [Concomitant]
     Active Substance: OXYCODONE HYDROCHLORIDE
     Dates: start: 20170816
  12. AMLODIPINE [Suspect]
     Active Substance: AMLODIPINE BESYLATE
     Dosage: 5 MILLIGRAM DAILY;
     Dates: start: 20181122

REACTIONS (2)
  - Pruritus [Unknown]
  - Joint swelling [Unknown]

NARRATIVE: CASE EVENT DATE: 20181122
